FAERS Safety Report 7966481-1 (Version None)
Quarter: 2011Q4

REPORT INFORMATION
  Report Type: 
  Country: None (occurrence: None)
  Receive Date: 20111208
  Receipt Date: 20111129
  Transmission Date: 20120403
  Serious: Yes (Other)
  Sender: FDA-Public Use
  Company Number: US-ASTRAZENECA-2011SE54525

PATIENT
  Age: 74 Year
  Sex: Female
  Weight: 68 kg

DRUGS (9)
  1. WARFARIN SODIUM [Concomitant]
     Indication: CARDIAC OPERATION
     Route: 048
  2. SYNTHROID [Concomitant]
     Indication: THYROID DISORDER
     Route: 048
  3. MULTI-VITAMINS [Concomitant]
  4. CHOLESTORIL [Concomitant]
     Indication: BLOOD CHOLESTEROL INCREASED
     Dosage: AT NIGHT
     Route: 048
  5. SIMVASTATIN [Concomitant]
  6. FOSAMAX [Concomitant]
     Indication: OSTEOPOROSIS
     Dosage: ONCE
     Route: 048
  7. FOSAMAX [Concomitant]
     Indication: ARTHRITIS
     Dosage: ONCE
     Route: 048
  8. CALCIUM [Concomitant]
  9. NEXIUM [Suspect]
     Indication: GASTROOESOPHAGEAL REFLUX DISEASE
     Route: 048
     Dates: start: 20040101

REACTIONS (4)
  - DRUG DOSE OMISSION [None]
  - OSTEOPOROSIS [None]
  - FLATULENCE [None]
  - INCORRECT DRUG ADMINISTRATION DURATION [None]
